FAERS Safety Report 8567834-3 (Version None)
Quarter: 2012Q3

REPORT INFORMATION
  Report Type: 
  Country: None (occurrence: None)
  Receive Date: 20120803
  Receipt Date: 20120731
  Transmission Date: 20120928
  Serious: Yes (Hospitalization)
  Sender: FDA-Public Use
  Company Number: US-PFIZER INC-2012121503

PATIENT
  Sex: Female
  Weight: 77.098 kg

DRUGS (2)
  1. REVATIO [Suspect]
     Dosage: UNK
  2. REVATIO [Suspect]
     Indication: PULMONARY HYPERTENSION
     Dosage: 20 MG, 3X/DAY
     Dates: start: 20110101

REACTIONS (3)
  - WHITE BLOOD CELL COUNT DECREASED [None]
  - ARRHYTHMIA [None]
  - HAEMOGLOBIN DECREASED [None]
